FAERS Safety Report 16122667 (Version 2)
Quarter: 2019Q2

REPORT INFORMATION
  Report Type: Spontaneous
  Country: JP (occurrence: JP)
  Receive Date: 20190327
  Receipt Date: 20190417
  Transmission Date: 20190711
  Serious: Yes (Other)
  Sender: FDA-Public Use
  Company Number: JP-SA-2019SA067100

PATIENT
  Age: 73 Year
  Sex: Male
  Weight: 56.5 kg

DRUGS (13)
  1. LANSOPRAZOLE. [Concomitant]
     Active Substance: LANSOPRAZOLE
     Indication: PRODUCT USED FOR UNKNOWN INDICATION
     Dosage: 15 MG, QD
     Route: 065
  2. DEXAMETHASONE SALT NOT SPECIFIED [Suspect]
     Active Substance: DEXAMETHASONE
     Indication: HER-2 POSITIVE GASTRIC CANCER
     Dosage: ADMINISTERED ON DAYS 2 AND 3
     Route: 065
  3. DEXAMETHASONE SALT NOT SPECIFIED [Suspect]
     Active Substance: DEXAMETHASONE
     Dosage: ADMINISTERED ON DAYS 2 AND 3
     Route: 065
  4. OLMESARTAN MEDOXOMIL. [Concomitant]
     Active Substance: OLMESARTAN MEDOXOMIL
     Indication: PRODUCT USED FOR UNKNOWN INDICATION
     Dosage: 10 MG, QD
     Route: 065
  5. FAMOTIDINE. [Suspect]
     Active Substance: FAMOTIDINE
     Indication: HER-2 POSITIVE GASTRIC CANCER
     Dosage: 20 MG, ON DAYS 1, 8, AND 15 AS PREMEDICATION
     Route: 065
  6. TITANIUM. [Suspect]
     Active Substance: TITANIUM
     Indication: HER-2 POSITIVE GASTRIC CANCER
     Dosage: PER DAY, ON DAYS 1-14
     Route: 065
  7. DOCETAXEL. [Suspect]
     Active Substance: DOCETAXEL
     Indication: HER-2 POSITIVE GASTRIC CANCER
     Dosage: 40 MG/M2, QCY, ON DAY 1
     Route: 041
  8. CISPLATIN. [Suspect]
     Active Substance: CISPLATIN
     Indication: HER-2 POSITIVE GASTRIC CANCER
     Dosage: 60 MG/M2, QCY, ON DAY 1
     Route: 065
  9. PALONOSETRON. [Suspect]
     Active Substance: PALONOSETRON HYDROCHLORIDE
     Indication: HER-2 POSITIVE GASTRIC CANCER
     Dosage: 0.75 MG
     Route: 065
  10. GIMERACIL;OTERACIL;TEGAFUR [Suspect]
     Active Substance: GIMERACIL\OTERACIL\TEGAFUR
     Indication: HER-2 POSITIVE GASTRIC CANCER
     Dosage: DAYS 1-14
     Route: 065
  11. GRANISETRON [Suspect]
     Active Substance: GRANISETRON
     Indication: HER-2 POSITIVE GASTRIC CANCER
     Dosage: 3 MG, ADMINISTERED ON DAYS 1, 8, AND 15 AS PREMEDICATION
     Route: 065
  12. PACLITAXEL. [Concomitant]
     Active Substance: PACLITAXEL
     Indication: HER-2 POSITIVE GASTRIC CANCER
     Dosage: 80 MG/M2, ON DAYS 1, 8, AND 15 AS SECOND REGIMEN
     Route: 065
  13. TITANIUM. [Suspect]
     Active Substance: TITANIUM
     Dosage: TS-1 WAS REDUCED (100 MG)
     Route: 065

REACTIONS (4)
  - Disease progression [Recovered/Resolved]
  - Diarrhoea [Unknown]
  - Therapeutic response decreased [Recovered/Resolved]
  - HER-2 positive gastric cancer [Recovered/Resolved]
